FAERS Safety Report 5626683-6 (Version None)
Quarter: 2008Q1

REPORT INFORMATION
  Report Type: 
  Country: None (occurrence: None)
  Receive Date: 20080214
  Receipt Date: 20080211
  Transmission Date: 20080703
  Serious: Yes (Other)
  Sender: FDA-Public Use
  Company Number: US-BOEHRINGER INGELHEIM GMBH, GERMANY-2008-BP-02114RO

PATIENT
  Age: 45 Year
  Sex: Female

DRUGS (10)
  1. METHADONE HCL [Suspect]
     Indication: BACK PAIN
  2. METHADONE HCL [Suspect]
  3. METHADONE HCL [Suspect]
  4. ETODOLAC [Suspect]
     Indication: BACK PAIN
  5. GABAPENTIN [Suspect]
     Indication: BACK PAIN
  6. FUROSEMIDE [Concomitant]
     Indication: OEDEMA
     Route: 048
  7. FUROSEMIDE [Concomitant]
     Route: 048
  8. PREDNISONE TAB [Concomitant]
     Indication: HYPERSENSITIVITY
  9. PREDNISONE TAB [Concomitant]
  10. FENTANYL [Concomitant]
     Indication: PAIN
     Route: 062

REACTIONS (4)
  - FEELING DRUNK [None]
  - OEDEMA [None]
  - SOMNOLENCE [None]
  - WEIGHT INCREASED [None]
